FAERS Safety Report 11188701 (Version 1)
Quarter: 2015Q2

REPORT INFORMATION
  Report Type: Spontaneous
  Country: US (occurrence: None)
  Receive Date: 20150611
  Receipt Date: 20150611
  Transmission Date: 20150821
  Serious: Yes (Hospitalization)
  Sender: FDA-Public Use
  Company Number: US-ZYDUS-008394

PATIENT
  Age: 10 Month
  Sex: Female

DRUGS (1)
  1. OXYCODONE HCL [Suspect]
     Active Substance: OXYCODONE HYDROCHLORIDE

REACTIONS (10)
  - Hypoxia [None]
  - Encephalitis [None]
  - Leukocytosis [None]
  - Brain hypoxia [None]
  - Accidental overdose [None]
  - Metabolic acidosis [None]
  - Respiratory acidosis [None]
  - Hypertonia [None]
  - Transaminases increased [None]
  - Brain injury [None]
